FAERS Safety Report 6787307-8 (Version None)
Quarter: 2010Q2

REPORT INFORMATION
  Report Type: 
  Country: None (occurrence: None)
  Receive Date: 20100623
  Receipt Date: 20060613
  Transmission Date: 20101027
  Serious: No
  Sender: FDA-Public Use
  Company Number: US-PFIZER INC-2006073742

PATIENT
  Sex: Female
  Weight: 68.04 kg

DRUGS (3)
  1. CADUET [Suspect]
     Indication: BLOOD CHOLESTEROL INCREASED
     Dosage: 5/10 MG
     Route: 048
     Dates: start: 20060601, end: 20060603
  2. LIPITOR [Suspect]
     Indication: BLOOD CHOLESTEROL INCREASED
     Route: 048
     Dates: start: 20060607, end: 20060607
  3. SYNTHROID [Concomitant]
     Indication: THYROID DISORDER
     Route: 065

REACTIONS (5)
  - BACK PAIN [None]
  - IMPAIRED WORK ABILITY [None]
  - PAIN IN EXTREMITY [None]
  - RASH MACULAR [None]
  - RENAL PAIN [None]
